FAERS Safety Report 19942825 (Version 1)
Quarter: 2021Q4

REPORT INFORMATION
  Report Type: Spontaneous
  Country: US (occurrence: US)
  Receive Date: 20211011
  Receipt Date: 20211011
  Transmission Date: 20220303
  Serious: Yes (Other)
  Sender: FDA-Public Use
  Company Number: None

PATIENT
  Age: 64 Year
  Sex: Male
  Weight: 84.24 kg

DRUGS (4)
  1. CLONIDINE [Suspect]
     Active Substance: CLONIDINE
     Indication: Drug withdrawal syndrome
     Dosage: ?          OTHER FREQUENCY:WEEKLY;
     Route: 062
     Dates: start: 20210511, end: 20210520
  2. DOXAZOSIN [Concomitant]
     Active Substance: DOXAZOSIN MESYLATE
  3. FENTANYL [Concomitant]
     Active Substance: FENTANYL
  4. MORPHINE [Concomitant]
     Active Substance: MORPHINE

REACTIONS (12)
  - Aggression [None]
  - Agitation [None]
  - Drug ineffective [None]
  - Bradypnoea [None]
  - Apnoea [None]
  - Restlessness [None]
  - Aggression [None]
  - Seizure like phenomena [None]
  - Vomiting [None]
  - Loss of consciousness [None]
  - Cardio-respiratory arrest [None]
  - Hypotension [None]

NARRATIVE: CASE EVENT DATE: 20210511
